FAERS Safety Report 4347702-3 (Version None)
Quarter: 2004Q2

REPORT INFORMATION
  Report Type: 
  Country: None (occurrence: None)
  Receive Date: 20040422
  Receipt Date: 20040401
  Transmission Date: 20050107
  Serious: Yes (Hospitalization, Other)
  Sender: FDA-Public Use
  Company Number: USA031049301

PATIENT
  Age: 80 Year
  Sex: Female
  Weight: 66 kg

DRUGS (9)
  1. EVISTA [Suspect]
     Indication: OSTEOPOROSIS
     Dosage: 60 MG/DAY
  2. BETIMOL (TIMOLOL) [Concomitant]
  3. ZANTAC [Concomitant]
  4. CALCIUM AND VITAMIN D [Concomitant]
  5. LIPITOR [Concomitant]
  6. LEVOXYL [Concomitant]
  7. MECLIZINE [Concomitant]
  8. ASPIRIN [Concomitant]
  9. AMBIEN [Concomitant]

REACTIONS (10)
  - BACK PAIN [None]
  - BRADYCARDIA [None]
  - CHEST PAIN [None]
  - DRUG INEFFECTIVE [None]
  - DYSPNOEA [None]
  - HYPERHIDROSIS [None]
  - MUSCLE CRAMP [None]
  - NAUSEA [None]
  - PAIN IN EXTREMITY [None]
  - WRIST FRACTURE [None]
